FAERS Safety Report 16991873 (Version 2)
Quarter: 2020Q4

REPORT INFORMATION
  Report Type: Spontaneous
  Country: CA (occurrence: CA)
  Receive Date: 20191104
  Receipt Date: 20201008
  Transmission Date: 20210113
  Serious: Yes (Other)
  Sender: FDA-Public Use
  Company Number: CA-SUN PHARMACEUTICAL INDUSTRIES LTD-2019R1-226159

PATIENT
  Age: 20 Year
  Sex: Male
  Weight: 65 kg

DRUGS (4)
  1. NEOSTIGMINE. [Suspect]
     Active Substance: NEOSTIGMINE METHYLSULFATE
     Indication: NEUROMUSCULAR BLOCKADE REVERSAL
     Dosage: UNK
     Route: 065
  2. FENTANYL. [Concomitant]
     Active Substance: FENTANYL
     Indication: NEUROMUSCULAR BLOCKADE
     Dosage: 50 MCG
     Route: 042
  3. ROCURONIUM [Concomitant]
     Active Substance: ROCURONIUM BROMIDE
     Indication: NEUROMUSCULAR BLOCKADE
     Dosage: 30 MG
     Route: 042
  4. GLYCOPYRROLATE. [Suspect]
     Active Substance: GLYCOPYRROLATE
     Indication: NEUROMUSCULAR BLOCKADE REVERSAL
     Route: 065

REACTIONS (1)
  - Atrioventricular block second degree [Recovered/Resolved]
